FAERS Safety Report 8862372 (Version 6)
Quarter: 2014Q3

REPORT INFORMATION
  Report Type: Report from Study
  Country: JP (occurrence: JP)
  Receive Date: 20121026
  Receipt Date: 20140812
  Transmission Date: 20150326
  Serious: Yes (Death, Other)
  Sender: FDA-Public Use
  Company Number: PHHY2012JP095707

PATIENT
  Age: 80 Year
  Sex: Male
  Weight: 43 kg

DRUGS (13)
  1. EXELON [Suspect]
     Active Substance: RIVASTIGMINE TARTRATE
     Dosage: 13.5MG, DAILY
     Route: 062
     Dates: start: 20120903, end: 20120930
  2. GLYCORAN [Concomitant]
     Active Substance: GLYCERIN
     Indication: TYPE 2 DIABETES MELLITUS
     Dosage: 500 MG, UNK
     Route: 048
     Dates: end: 20121019
  3. RISPERDAL [Concomitant]
     Active Substance: RISPERIDONE
     Dosage: 4 MG, UNK
     Route: 048
     Dates: start: 201208, end: 20121016
  4. EXELON [Suspect]
     Active Substance: RIVASTIGMINE TARTRATE
     Dosage: 9 MG, DAILY
     Route: 062
     Dates: start: 20120820, end: 20120902
  5. JANUVIA [Concomitant]
     Active Substance: SITAGLIPTIN PHOSPHATE
     Indication: TYPE 2 DIABETES MELLITUS
     Dosage: 50 MG, UNK
     Route: 048
     Dates: end: 20121019
  6. BLOPRESS [Concomitant]
     Active Substance: CANDESARTAN CILEXETIL
     Indication: HYPERTENSION
     Dosage: 4 MG, UNK
     Route: 048
     Dates: end: 20121019
  7. MEMARY [Concomitant]
     Active Substance: MEMANTINE HYDROCHLORIDE
     Indication: DEMENTIA ALZHEIMER^S TYPE
     Dosage: 20 MG, UNK
     Route: 048
     Dates: start: 20120730, end: 20121019
  8. RISPERDAL [Concomitant]
     Active Substance: RISPERIDONE
     Indication: SCHIZOPHRENIA
     Dosage: 2 MG, UNK
     Route: 048
     Dates: start: 20120802
  9. EXELON [Suspect]
     Active Substance: RIVASTIGMINE TARTRATE
     Dosage: 18 MG, DAILY
     Route: 062
     Dates: start: 20121001, end: 20121019
  10. BASEN [Concomitant]
     Active Substance: VOGLIBOSE
     Indication: TYPE 2 DIABETES MELLITUS
     Dosage: 0.9 MG, UNK
     Route: 048
     Dates: end: 20121019
  11. DIART [Concomitant]
     Active Substance: AZOSEMIDE
     Indication: CARDIAC FAILURE CONGESTIVE
     Dosage: 60 MG, UNK
     Dates: start: 20120910
  12. EXELON [Suspect]
     Active Substance: RIVASTIGMINE TARTRATE
     Indication: DEMENTIA ALZHEIMER^S TYPE
     Dosage: 4.5 MG, DAILY
     Route: 062
     Dates: start: 20120730, end: 20120819
  13. LACTEC                             /00490001/ [Concomitant]
     Indication: CARDIAC FAILURE CONGESTIVE
     Dosage: 500 ML, UNK
     Route: 042
     Dates: start: 20121016

REACTIONS (10)
  - Cardio-respiratory arrest [Fatal]
  - Eating disorder [Unknown]
  - Restlessness [Unknown]
  - Schizophrenia [Unknown]
  - Cardiac failure congestive [Fatal]
  - Unresponsive to stimuli [Fatal]
  - Depressed level of consciousness [Fatal]
  - Gait disturbance [Unknown]
  - Blood pressure decreased [Fatal]
  - Somnolence [Unknown]

NARRATIVE: CASE EVENT DATE: 201208
